FAERS Safety Report 20920632 (Version 1)
Quarter: 2022Q2

REPORT INFORMATION
  Report Type: Spontaneous
  Country: None (occurrence: PL)
  Receive Date: 20220606
  Receipt Date: 20220606
  Transmission Date: 20220720
  Serious: Yes (Hospitalization)
  Sender: FDA-Public Use
  Company Number: PL-B.Braun Medical Inc.-2129510

PATIENT
  Age: 72 Year
  Sex: Female

DRUGS (3)
  1. CEFUROXIME SODIUM [Suspect]
     Active Substance: CEFUROXIME SODIUM
  2. MEROPENEM [Suspect]
     Active Substance: MEROPENEM
  3. METRONIDAZOLE [Suspect]
     Active Substance: METRONIDAZOLE

REACTIONS (1)
  - Therapy non-responder [Unknown]
